FAERS Safety Report 8320449-4 (Version None)
Quarter: 2012Q2

REPORT INFORMATION
  Report Type: 
  Country: None (occurrence: None)
  Receive Date: 20120430
  Receipt Date: 20120423
  Transmission Date: 20120825
  Serious: Yes (Other)
  Sender: FDA-Public Use
  Company Number: US-SANOFI-AVENTIS-2012SA013973

PATIENT
  Age: 61 Year
  Sex: Female
  Weight: 77.27 kg

DRUGS (24)
  1. ANALGESICS [Concomitant]
  2. GABAPENTIN [Concomitant]
  3. ALLOPURINOL [Concomitant]
     Dates: start: 20110728
  4. DIOVAN HCT [Concomitant]
     Dosage: 160/25
  5. ALLEGRA [Concomitant]
  6. COLESTIPOL HYDROCHLORIDE [Concomitant]
  7. METFORMIN HCL [Concomitant]
  8. ESTROPIPATE [Concomitant]
  9. LANTUS [Suspect]
     Route: 058
     Dates: start: 19950101, end: 20120201
  10. OPTICLICK [Suspect]
     Dates: start: 19950101, end: 20120201
  11. PIOGLITAZONE [Concomitant]
  12. CEFUROXIME AXETIL [Concomitant]
  13. OXYBUTYNIN [Concomitant]
  14. POTASSIUM CHLORIDE [Concomitant]
  15. LEVOTHYROXINE SODIUM [Concomitant]
  16. CITALOPRAM [Concomitant]
     Dates: start: 20111101
  17. VITAMIN D [Concomitant]
  18. LANTUS [Suspect]
     Dosage: 25-30 UNITS THREE TO TIMES A DAY, ALSO REPROTED AS 15 TO 25 UNITS AT BEDTIME
     Route: 058
     Dates: start: 20120201
  19. PRAVASTATIN [Concomitant]
  20. NABUMETONE [Concomitant]
  21. OPTICLICK [Suspect]
     Dates: start: 20120201
  22. ESOMEPRAZOLE MAGNESIUM [Concomitant]
  23. COREG [Concomitant]
  24. POLY-IRON [Concomitant]
     Dosage: 150, 1 EVERY EVENING

REACTIONS (3)
  - BACK DISORDER [None]
  - DECREASED APPETITE [None]
  - BLOOD GLUCOSE INCREASED [None]
